FAERS Safety Report 11629578 (Version 1)
Quarter: 2015Q4

REPORT INFORMATION
  Report Type: Spontaneous
  Country: NL (occurrence: NL)
  Receive Date: 20151014
  Receipt Date: 20151014
  Transmission Date: 20160304
  Serious: Yes (Life-Threatening)
  Sender: FDA-Public Use
  Company Number: NL-ASTRAZENECA-2015SE97021

PATIENT
  Age: 20784 Day
  Sex: Male
  Weight: 82 kg

DRUGS (3)
  1. BARNIDIPINE [Suspect]
     Active Substance: BARNIDIPINE
     Indication: BLOOD PRESSURE INCREASED
     Route: 048
  2. BARNIDIPINE [Interacting]
     Active Substance: BARNIDIPINE
     Indication: BLOOD CHOLESTEROL INCREASED
     Route: 048
     Dates: start: 20150908
  3. PRAVASTATIN [Interacting]
     Active Substance: PRAVASTATIN\PRAVASTATIN SODIUM
     Indication: BLOOD CHOLESTEROL INCREASED
     Route: 048
     Dates: start: 20150820, end: 20150822

REACTIONS (5)
  - Skin mass [Recovered/Resolved with Sequelae]
  - Drug interaction [Recovered/Resolved with Sequelae]
  - Pain [Recovered/Resolved with Sequelae]
  - Insomnia [Recovered/Resolved with Sequelae]
  - Pruritus [Recovered/Resolved with Sequelae]

NARRATIVE: CASE EVENT DATE: 20150908
